FAERS Safety Report 5059950-8 (Version None)
Quarter: 2006Q3

REPORT INFORMATION
  Report Type: 
  Country: None (occurrence: None)
  Receive Date: 20060719
  Receipt Date: 20060711
  Transmission Date: 20061208
  Serious: Yes (Other)
  Sender: FDA-Public Use
  Company Number: L06-ESP-02690-01

PATIENT
  Age: 36 Year
  Sex: Male

DRUGS (6)
  1. CARBAMAZEPINE [Suspect]
     Indication: PARTIAL SEIZURES
     Dosage: 600 MG QD
  2. RITONAVIR [Suspect]
     Indication: HIV INFECTION
     Dosage: 600 MG BID
     Dates: start: 19971201
  3. SAQUINAVIR [Suspect]
     Indication: HIV INFECTION
     Dosage: 400 MG BID
     Dates: start: 19971201
  4. PHENYTOIN [Concomitant]
  5. LAMIVUDINE [Concomitant]
  6. DIDANOSINE [Concomitant]

REACTIONS (6)
  - DIZZINESS [None]
  - DRUG INTERACTION [None]
  - DRUG TOXICITY [None]
  - GAIT DISTURBANCE [None]
  - HEMIPARESIS [None]
  - OVERDOSE [None]
